FAERS Safety Report 8484063-2 (Version None)
Quarter: 2012Q2

REPORT INFORMATION
  Report Type: 
  Country: None (occurrence: None)
  Receive Date: 20120627
  Receipt Date: 20120627
  Transmission Date: 20120825
  Serious: No
  Sender: FDA-Public Use
  Company Number: None

PATIENT
  Sex: Male
  Weight: 65.7 kg

DRUGS (1)
  1. CISPLATIN [Suspect]
     Dosage: 369 MG

REACTIONS (4)
  - DEHYDRATION [None]
  - NAUSEA [None]
  - VOMITING [None]
  - RENAL FAILURE ACUTE [None]
